FAERS Safety Report 9574669 (Version 2)
Quarter: 2013Q4

REPORT INFORMATION
  Report Type: Spontaneous
  Country: US (occurrence: US)
  Receive Date: 20131001
  Receipt Date: 20131001
  Transmission Date: 20140711
  Serious: Yes (Other)
  Sender: FDA-Public Use
  Company Number: US-NAPPMUNDI-USA-2012-0084051

PATIENT
  Age: 44 Year
  Sex: Male
  Weight: 106.58 kg

DRUGS (4)
  1. BUTRANS [Suspect]
     Indication: PAIN
     Dosage: 5 MCG/HR, SEE TEXT
     Route: 062
     Dates: start: 20120221, end: 20120316
  2. ACTOS [Concomitant]
     Indication: PRODUCT USED FOR UNKNOWN INDICATION
     Dosage: 1.2 MG, BID
     Dates: start: 2011
  3. VICTOZA [Concomitant]
     Indication: PRODUCT USED FOR UNKNOWN INDICATION
     Dosage: 30 MG, DAILY
     Dates: start: 2011
  4. LAMICTAL [Concomitant]
     Indication: PRODUCT USED FOR UNKNOWN INDICATION
     Dosage: 150 MG, TID
     Dates: start: 2011

REACTIONS (2)
  - Hypertension [Recovered/Resolved]
  - Blood pressure increased [Recovered/Resolved]
